FAERS Safety Report 9153805 (Version 2)
Quarter: 2013Q1

REPORT INFORMATION
  Report Type: Spontaneous
  Country: US (occurrence: None)
  Receive Date: 20130206
  Receipt Date: 20130313
  Transmission Date: 20140127
  Serious: Yes (Hospitalization, Other)
  Sender: FDA-Public Use
  Company Number: JPI-P-029504

PATIENT
  Age: 49 Year
  Sex: Female
  Weight: 64.86 kg

DRUGS (4)
  1. XYREM (500 MILLIGRAM/MILLILITERS, SOLUTION) (SODIUM OXYBATE) [Suspect]
     Indication: CATAPLEXY
     Route: 048
     Dates: start: 20130107, end: 201301
  2. TOPIRAMATE [Concomitant]
  3. ROSUVASTATIN CALCIUM [Concomitant]
  4. METFORMIN [Concomitant]

REACTIONS (24)
  - Hallucination [None]
  - Psychotic disorder [None]
  - Pruritus [None]
  - Pollakiuria [None]
  - Hyperhidrosis [None]
  - Skin odour abnormal [None]
  - Weight decreased [None]
  - Drug ineffective [None]
  - Feeling jittery [None]
  - Tremor [None]
  - Gastrointestinal disorder [None]
  - Tinnitus [None]
  - Balance disorder [None]
  - Paranoia [None]
  - Abnormal dreams [None]
  - Nightmare [None]
  - Abnormal dreams [None]
  - Dyspnoea [None]
  - Panic attack [None]
  - Insomnia [None]
  - Memory impairment [None]
  - Aphasia [None]
  - Metabolic disorder [None]
  - Convulsion [None]
